FAERS Safety Report 7480690-X (Version None)
Quarter: 2011Q2

REPORT INFORMATION
  Report Type: 
  Country: None (occurrence: None)
  Receive Date: 20110505
  Receipt Date: 20110419
  Transmission Date: 20111010
  Serious: Yes (Death, Other)
  Sender: FDA-Public Use
  Company Number: WAES 1008FRA00018

PATIENT
  Age: 54 Year
  Sex: Male

DRUGS (15)
  1. ISENTRESS [Suspect]
     Indication: HIV INFECTION
     Dosage: 800 MG DAILY, PO
     Route: 048
     Dates: start: 20100530, end: 20100831
  2. DAPSONE [Suspect]
     Indication: PROPHYLAXIS
     Dosage: 100 MG DAILY,
     Dates: start: 20110115
  3. PYRIDOXINE HCL [Concomitant]
  4. LAMIVUDINE [Suspect]
     Indication: HIV INFECTION
     Dosage: 300 MG DAILY, PO
     Route: 048
     Dates: start: 20100630
  5. TENOFOVIR DISOPROXIL FUMARATE [Suspect]
     Indication: HIV INFECTION
     Dosage: 300 MG DAILY, PO
     Route: 048
     Dates: start: 20100530
  6. PYRAZINAMIDE [Concomitant]
  7. AZITHROMYCIN [Concomitant]
  8. RIFAMPIN [Suspect]
     Indication: TUBERCULOSIS
     Dosage: 600 MG DAILY, PO
     Route: 048
     Dates: start: 20100522, end: 20100810
  9. ISONIAZID [Suspect]
     Indication: TUBERCULOSIS
     Dosage: 400 MG, DAILY, PO
     Route: 048
     Dates: start: 20100522, end: 20100810
  10. LEUCOVORIN CALCIUM [Concomitant]
  11. ACYCLOVIR [Concomitant]
  12. SULFAMETHOXAZOLE TRIMETHOPRIM [Concomitant]
  13. CIPROFLOXACIN [Concomitant]
  14. OMEPRAZOLE [Concomitant]
  15. IVERMECTIN [Concomitant]

REACTIONS (7)
  - ANAEMIA [None]
  - NEUTROPENIA [None]
  - SEPTIC SHOCK [None]
  - MYOCARDIAL INFARCTION [None]
  - DRUG ERUPTION [None]
  - LEUKOPENIA [None]
  - CONDITION AGGRAVATED [None]
